FAERS Safety Report 14194516 (Version 1)
Quarter: 2017Q4

REPORT INFORMATION
  Report Type: Spontaneous
  Country: US (occurrence: US)
  Receive Date: 20171115
  Receipt Date: 20171115
  Transmission Date: 20180321
  Serious: No
  Sender: FDA-Public Use
  Company Number: None

PATIENT
  Age: 23 Year
  Sex: Female
  Weight: 60.75 kg

DRUGS (2)
  1. FERROUS SULFATE TABLETS [Suspect]
     Active Substance: FERROUS SULFATE
     Indication: IRON DEFICIENCY
     Dosage: ?          QUANTITY:100 TABLET(S);?
     Route: 048
     Dates: start: 20171029, end: 20171115
  2. BIOTON [Concomitant]

REACTIONS (2)
  - Abdominal distension [None]
  - Decreased appetite [None]

NARRATIVE: CASE EVENT DATE: 20171112
